FAERS Safety Report 24580159 (Version 1)
Quarter: 2024Q4

REPORT INFORMATION
  Report Type: Spontaneous
  Country: US (occurrence: US)
  Receive Date: 20241105
  Receipt Date: 20241105
  Transmission Date: 20250115
  Serious: No
  Sender: ROCHE
  Company Number: US-ROCHE-10000122629

PATIENT
  Sex: Male

DRUGS (5)
  1. RITUXAN [Suspect]
     Active Substance: RITUXIMAB
     Indication: Interstitial lung disease
     Dosage: NEVER FILLED
     Route: 065
     Dates: start: 202409
  2. NEXIUM CPD [Concomitant]
     Indication: Product used for unknown indication
  3. RITUXAN SOL [Concomitant]
     Indication: Product used for unknown indication
     Dosage: 500MG/50ML
  4. TAMSULOSIN H CAP [Concomitant]
     Indication: Product used for unknown indication
  5. VITAMIN D LIQ [Concomitant]
     Indication: Product used for unknown indication
     Dosage: 10 MCG/ML

REACTIONS (3)
  - Diarrhoea [Not Recovered/Not Resolved]
  - Dizziness [Not Recovered/Not Resolved]
  - Nausea [Not Recovered/Not Resolved]
